FAERS Safety Report 9693054 (Version 1)
Quarter: 2013Q4

REPORT INFORMATION
  Report Type: Spontaneous
  Country: US (occurrence: None)
  Receive Date: 20131115
  Receipt Date: 20131115
  Transmission Date: 20140711
  Serious: No
  Sender: FDA-Public Use
  Company Number: None

PATIENT
  Age: 74 Year
  Sex: Female

DRUGS (1)
  1. ADVIL [Suspect]
     Dates: start: 201012, end: 20110715

REACTIONS (9)
  - Drug-induced liver injury [None]
  - Asthenia [None]
  - Fatigue [None]
  - Nausea [None]
  - Vomiting [None]
  - Rash [None]
  - Hyponatraemia [None]
  - Liver function test abnormal [None]
  - Pruritus [None]
